FAERS Safety Report 22006867 (Version 1)
Quarter: 2023Q1

REPORT INFORMATION
  Report Type: Spontaneous
  Country: US (occurrence: US)
  Receive Date: 20230217
  Receipt Date: 20230217
  Transmission Date: 20230418
  Serious: Yes (Hospitalization)
  Sender: FDA-Public Use
  Company Number: US-BAUSCHBL-2023BNL001064

PATIENT
  Age: 73 Year
  Sex: Female

DRUGS (2)
  1. BRIMONIDINE [Suspect]
     Active Substance: BRIMONIDINE TARTRATE
     Indication: Suicidal ideation
     Dosage: INJECTING BRIMONIDINE INTO FOREARM INTENTIONALLY
     Route: 058
  2. BRIMONIDINE [Suspect]
     Active Substance: BRIMONIDINE TARTRATE

REACTIONS (2)
  - Systemic toxicity [Recovered/Resolved]
  - Intentional product use issue [Unknown]
